FAERS Safety Report 10268832 (Version 1)
Quarter: 2014Q2

REPORT INFORMATION
  Report Type: Spontaneous
  Country: US (occurrence: US)
  Receive Date: 20140630
  Receipt Date: 20140630
  Transmission Date: 20141212
  Serious: Yes (Hospitalization, Disabling, Other)
  Sender: FDA-Public Use
  Company Number: US-BAYER-2014-093345

PATIENT
  Age: 42 Year
  Sex: Female

DRUGS (3)
  1. CIPRO [Suspect]
     Indication: URINARY TRACT INFECTION
     Dosage: 400 MG 3 TIMES IN AN HOUR
     Dates: start: 20070808
  2. PROPOFOL [Suspect]
     Dosage: 4 1000 MG DOSES TOTALLY
     Dates: start: 20070810
  3. IMITREX [Concomitant]

REACTIONS (16)
  - Cerebrovascular accident [None]
  - Overdose [None]
  - Contraindication to medical treatment [None]
  - Dyspnoea [None]
  - Obstructive airways disorder [None]
  - Cerebrovascular accident [None]
  - Pneumothorax [None]
  - Cardiomegaly [None]
  - Heart rate decreased [None]
  - Oxygen saturation decreased [None]
  - Fear of death [None]
  - Coma [None]
  - Gait disturbance [None]
  - Memory impairment [None]
  - Speech disorder [None]
  - Impaired work ability [None]
